FAERS Safety Report 10038803 (Version 1)
Quarter: 2014Q1

REPORT INFORMATION
  Report Type: Spontaneous
  Country: US (occurrence: None)
  Receive Date: 20140306
  Receipt Date: 20140306
  Transmission Date: 20141002
  Serious: Yes (Life-Threatening)
  Sender: FDA-Public Use
  Company Number: 163-21880-13063163

PATIENT
  Age: 62 Year
  Sex: Male
  Weight: 64.86 kg

DRUGS (5)
  1. REVLIMID (LENALIDOMIDE) [Suspect]
     Indication: PLASMA CELL MYELOMA
     Route: 048
     Dates: start: 20120403
  2. DEXAMETHASONE [Concomitant]
  3. COUMADIN (WARFARIN SODIUM) [Concomitant]
  4. KLOR-CON (POTASSIUM CHLORIDE) [Concomitant]
  5. MORPHINE SULFATE (MORPHINE SULFATE) [Concomitant]

REACTIONS (1)
  - Thrombosis [None]
